FAERS Safety Report 8368794-0 (Version None)
Quarter: 2012Q2

REPORT INFORMATION
  Report Type: 
  Country: None (occurrence: None)
  Receive Date: 20120518
  Receipt Date: 20120505
  Transmission Date: 20120825
  Serious: Yes (Hospitalization, Other)
  Sender: FDA-Public Use
  Company Number: DE-PAR PHARMACEUTICAL, INC-2012SCPR004378

PATIENT

DRUGS (4)
  1. TRAMADOL HYDROCHLORIDE [Concomitant]
     Indication: ARTHRITIS
     Dosage: UNK, UNKNOWN
     Route: 065
  2. TRIAMTERENE [Concomitant]
     Indication: HYPERTENSION
     Dosage: UNK, UNKNOWN
     Route: 065
  3. METAMIZOLE [Concomitant]
     Indication: ARTHRITIS
     Dosage: UNK, UNKNOWN
     Route: 065
  4. TORSEMIDE [Suspect]
     Indication: HYPERTENSION
     Dosage: UNK, UNKNOWN
     Route: 065

REACTIONS (4)
  - KERATITIS [None]
  - DERMATITIS [None]
  - PHOTOSENSITIVITY REACTION [None]
  - CONJUNCTIVITIS [None]
